FAERS Safety Report 9191437 (Version 1)
Quarter: 2013Q1

REPORT INFORMATION
  Report Type: Spontaneous
  Country: BE (occurrence: BE)
  Receive Date: 20130326
  Receipt Date: 20130326
  Transmission Date: 20140127
  Serious: Yes (Other)
  Sender: FDA-Public Use
  Company Number: BE-WATSON-2013-04352

PATIENT
  Age: 5 Year
  Sex: Male

DRUGS (4)
  1. TESTOSTERONE [Suspect]
     Indication: ACCIDENTAL EXPOSURE TO PRODUCT
     Dosage: UNK, ONCE DAILY
     Route: 003
  2. TESTOSTERONE [Suspect]
     Indication: EXPOSURE VIA FATHER
     Dosage: UNK, ONCE DAILY
     Route: 050
  3. DEXAMETHASONE [Concomitant]
     Indication: PRODUCT USED FOR UNKNOWN INDICATION
     Dosage: UNK
     Route: 050
  4. DEHYDROEPIANDROSTERONE [Concomitant]
     Indication: PRODUCT USED FOR UNKNOWN INDICATION
     Dosage: UNK
     Route: 050

REACTIONS (4)
  - Precocious puberty [Recovering/Resolving]
  - Withdrawal syndrome [Recovering/Resolving]
  - Exposure via father [Unknown]
  - Accidental exposure to product [Recovering/Resolving]
